FAERS Safety Report 20517010 (Version 1)
Quarter: 2022Q1

REPORT INFORMATION
  Report Type: Spontaneous
  Country: HK (occurrence: HK)
  Receive Date: 20220225
  Receipt Date: 20220225
  Transmission Date: 20220424
  Serious: Yes (Hospitalization, Other)
  Sender: FDA-Public Use
  Company Number: HK-MACLEODS PHARMACEUTICALS US LTD-MAC2022034501

PATIENT

DRUGS (2)
  1. METFORMIN [Suspect]
     Active Substance: METFORMIN HYDROCHLORIDE
     Indication: Diabetes mellitus
     Dosage: 250 MILLIGRAM, BID
     Route: 065
  2. INSULIN NOS [Concomitant]
     Active Substance: INSULIN NOS
     Indication: Diabetes mellitus
     Dosage: UNK
     Route: 065

REACTIONS (3)
  - Seizure [Recovered/Resolved]
  - Deafness [Unknown]
  - Somnolence [Recovered/Resolved]
